FAERS Safety Report 10686361 (Version 1)
Quarter: 2014Q4

REPORT INFORMATION
  Report Type: Spontaneous
  Country: US (occurrence: US)
  Receive Date: 20141231
  Receipt Date: 20141231
  Transmission Date: 20150529
  Serious: No
  Sender: FDA-Public Use
  Company Number: US-ASTRAZENECA-2014SE97261

PATIENT
  Sex: Male
  Weight: 83.9 kg

DRUGS (2)
  1. DEPAKOTE GENERIC [Concomitant]
     Active Substance: DIVALPROEX SODIUM
  2. SEROQUEL [Suspect]
     Active Substance: QUETIAPINE FUMARATE
     Indication: BIPOLAR DISORDER
     Route: 048
     Dates: start: 2008

REACTIONS (1)
  - Adverse drug reaction [Unknown]
